FAERS Safety Report 22261122 (Version 2)
Quarter: 2023Q2

REPORT INFORMATION
  Report Type: Spontaneous
  Country: CO (occurrence: CO)
  Receive Date: 20230427
  Receipt Date: 20230616
  Transmission Date: 20230722
  Serious: Yes (Other)
  Sender: FDA-Public Use
  Company Number: CO-ALXN-A202305608

PATIENT
  Age: 56 Year
  Sex: Male
  Weight: 75 kg

DRUGS (2)
  1. SOLIRIS [Suspect]
     Active Substance: ECULIZUMAB
     Indication: Paroxysmal nocturnal haemoglobinuria
     Dosage: 600 MG , QW
     Route: 042
     Dates: start: 20210430
  2. SOLIRIS [Suspect]
     Active Substance: ECULIZUMAB
     Dosage: 900.0 MG , Q2W
     Route: 042

REACTIONS (3)
  - Haemoglobinuria [Recovered/Resolved]
  - Asthenia [Recovered/Resolved]
  - Jaundice [Recovered/Resolved]

NARRATIVE: CASE EVENT DATE: 20230419
